FAERS Safety Report 5091193-4 (Version None)
Quarter: 2006Q3

REPORT INFORMATION
  Report Type: 
  Country: None (occurrence: None)
  Receive Date: 20060825
  Receipt Date: 20060825
  Transmission Date: 20061208
  Serious: Yes (Life-Threatening, Hospitalization)
  Sender: FDA-Public Use
  Company Number: None

PATIENT
  Age: 57 Year
  Sex: Male
  Weight: 131.5 kg

DRUGS (11)
  1. LISINOPRIL [Suspect]
  2. PREDNISONE TAB [Concomitant]
  3. CLONAZEPAM [Concomitant]
  4. MORPHINE SULFATE [Concomitant]
  5. TETRACYCLINE [Concomitant]
  6. LORAZEPAM [Concomitant]
  7. BUPROPION HCL [Concomitant]
  8. GABAPENTIN [Concomitant]
  9. ISOSORBIDE MONONITRATE [Concomitant]
  10. INSULIN REG HUMAN 100 UNIT/ML NOVOLIN R [Concomitant]
  11. BUMETANIDE [Concomitant]

REACTIONS (1)
  - RENAL FAILURE ACUTE [None]
